FAERS Safety Report 26193904 (Version 1)
Quarter: 2025Q4

REPORT INFORMATION
  Report Type: Spontaneous
  Country: US (occurrence: US)
  Receive Date: 20251224
  Receipt Date: 20251224
  Transmission Date: 20260118
  Serious: Yes (Hospitalization, Other)
  Sender: HIKMA
  Company Number: US-HIKMA PHARMACEUTICALS USA INC.-US-H14001-25-13220

PATIENT
  Sex: Female

DRUGS (1)
  1. METHOTREXATE [Suspect]
     Active Substance: METHOTREXATE
     Indication: Back injury
     Dosage: UNK
     Route: 065

REACTIONS (4)
  - Diplegia [Unknown]
  - Near death experience [Unknown]
  - Accidental overdose [Unknown]
  - Off label use [Unknown]
